FAERS Safety Report 5211156-5 (Version None)
Quarter: 2006Q4

REPORT INFORMATION
  Report Type: 
  Country: None (occurrence: None)
  Receive Date: 20061130
  Receipt Date: 20051229
  Transmission Date: 20070319
  Serious: Yes (Hospitalization)
  Sender: FDA-Public Use
  Company Number: WAES 0512USA04066

PATIENT
  Age: 45 Year
  Sex: Female

DRUGS (1)
  1. FOSAMAX [Suspect]
     Indication: OSTEOPOROSIS
     Dosage: 70 MG/WKY/PO
     Route: 048
     Dates: start: 20030101, end: 20051222

REACTIONS (3)
  - DYSPEPSIA [None]
  - GASTRITIS [None]
  - OESOPHAGITIS [None]
